FAERS Safety Report 6822118-6 (Version None)
Quarter: 2010Q3

REPORT INFORMATION
  Report Type: 
  Country: None (occurrence: None)
  Receive Date: 20100708
  Receipt Date: 20100629
  Transmission Date: 20110219
  Serious: Yes (Other)
  Sender: FDA-Public Use
  Company Number: BR-ASTRAZENECA-2010SE30556

PATIENT
  Age: 14 Year
  Sex: Female
  Weight: 70 kg

DRUGS (3)
  1. SYMBICORT [Suspect]
     Indication: ASTHMA
     Dosage: 320/9 MCG
     Route: 055
     Dates: start: 20091201
  2. SYMBICORT [Suspect]
     Dosage: 320/9 MCG
     Route: 055
  3. SYMBICORT [Suspect]
     Dosage: 320/9 MCG
     Route: 055

REACTIONS (1)
  - DYSPNOEA [None]
